FAERS Safety Report 17068136 (Version 1)
Quarter: 2019Q4

REPORT INFORMATION
  Report Type: Other
  Country: DE (occurrence: DE)
  Receive Date: 20191122
  Receipt Date: 20191122
  Transmission Date: 20200122
  Serious: Yes (Death)
  Sender: FDA-Public Use
  Company Number: DE-CELLTRION INC.-2019DE026719

PATIENT

DRUGS (10)
  1. THALIDOMIDE [Suspect]
     Active Substance: THALIDOMIDE
     Indication: DIFFUSE LARGE B-CELL LYMPHOMA
     Dosage: 1ST LINE, R-CHOP, 6+2 CYCLES
     Route: 065
     Dates: start: 201711, end: 201805
  2. PREDNISONE. [Suspect]
     Active Substance: PREDNISONE
     Indication: DIFFUSE LARGE B-CELL LYMPHOMA
     Dosage: 60 MG PER DAY
     Route: 065
     Dates: start: 20190212
  3. CYCLOPHOSPHAMIDE. [Suspect]
     Active Substance: CYCLOPHOSPHAMIDE
     Indication: DIFFUSE LARGE B-CELL LYMPHOMA
     Dosage: 1ST LINE, R-CHOP, 6+2 CYCLES
     Route: 065
     Dates: start: 201711, end: 201805
  4. RITUXIMAB (UNKNOWN) [Suspect]
     Active Substance: RITUXIMAB
     Dosage: 2ND LINE, R-GEMOX, 3 CYCLES
     Route: 065
     Dates: start: 201808, end: 201811
  5. BENDAMUSTINE [Suspect]
     Active Substance: BENDAMUSTINE
     Indication: DIFFUSE LARGE B-CELL LYMPHOMA
     Dosage: UNK
     Route: 065
     Dates: start: 20190214
  6. RITUXIMAB (UNKNOWN) [Suspect]
     Active Substance: RITUXIMAB
     Indication: DIFFUSE LARGE B-CELL LYMPHOMA
     Dosage: 1ST LINE, R-CHOP, 6+2 CYCLES
     Route: 065
     Dates: start: 201711, end: 201805
  7. METHOTREXATE. [Suspect]
     Active Substance: METHOTREXATE
     Indication: DIFFUSE LARGE B-CELL LYMPHOMA
     Dosage: 1ST LINE, R-CHOP, 6+2 CYCLES
     Route: 065
     Dates: start: 201711, end: 201805
  8. AZATHIOPRINE. [Suspect]
     Active Substance: AZATHIOPRINE
     Indication: DIFFUSE LARGE B-CELL LYMPHOMA
     Dosage: 1ST LINE, R-CHOP, 6+2 CYCLES
     Route: 065
     Dates: start: 201711, end: 201805
  9. DEXAMETHASONE. [Suspect]
     Active Substance: DEXAMETHASONE
     Indication: DIFFUSE LARGE B-CELL LYMPHOMA
     Dosage: 1ST LINE, R-CHOP, 6+2 CYCLES
     Route: 065
     Dates: start: 201711, end: 201805
  10. RITUXIMAB (UNKNOWN) [Suspect]
     Active Substance: RITUXIMAB
     Dosage: FURTHER LINES, RADIOTHERAPY, 40GY
     Route: 065
     Dates: start: 201812, end: 201901

REACTIONS (2)
  - Aspartate aminotransferase increased [Fatal]
  - Death [Fatal]
